FAERS Safety Report 18054518 (Version 4)
Quarter: 2021Q2

REPORT INFORMATION
  Report Type: Spontaneous
  Country: CA (occurrence: CA)
  Receive Date: 20200722
  Receipt Date: 20210512
  Transmission Date: 20210717
  Serious: Yes (Hospitalization, Other)
  Sender: FDA-Public Use
  Company Number: CA-SA-2020SA187815

PATIENT
  Age: 6 Month
  Sex: Female

DRUGS (12)
  1. RIFAMPICIN [Suspect]
     Active Substance: RIFAMPIN
     Indication: EVIDENCE BASED TREATMENT
     Dosage: UNK
  2. CEFOTAXIME SODIUM [Suspect]
     Active Substance: CEFOTAXIME SODIUM
     Indication: MENINGITIS
  3. AMPICILLIN [Suspect]
     Active Substance: AMPICILLIN
     Indication: MENINGITIS HAEMOPHILUS
     Dosage: UNK
  4. VANCOMYCIN [Suspect]
     Active Substance: VANCOMYCIN
     Indication: MENINGITIS
  5. VANCOMYCIN [Suspect]
     Active Substance: VANCOMYCIN
     Indication: PLEOCYTOSIS
  6. RIFAMPICIN [Suspect]
     Active Substance: RIFAMPIN
     Indication: MENINGITIS
  7. CEFOTAXIME SODIUM [Suspect]
     Active Substance: CEFOTAXIME SODIUM
     Indication: EVIDENCE BASED TREATMENT
     Dosage: INJECTION
  8. RIFAMPICIN [Suspect]
     Active Substance: RIFAMPIN
     Indication: PLEOCYTOSIS
  9. VANCOMYCIN [Suspect]
     Active Substance: VANCOMYCIN
     Indication: EVIDENCE BASED TREATMENT
     Dosage: UNK
  10. CEFOTAXIME SODIUM [Suspect]
     Active Substance: CEFOTAXIME SODIUM
     Indication: PLEOCYTOSIS
  11. VANCOMYCIN [Suspect]
     Active Substance: VANCOMYCIN
     Indication: BACTERIAL SEPSIS
     Dosage: COMPLETED COURSE OF VANCOMYCIN
  12. VANCOMYCIN [Suspect]
     Active Substance: VANCOMYCIN
     Indication: BACILLUS INFECTION

REACTIONS (1)
  - Candida infection [Recovered/Resolved]
